FAERS Safety Report 7462797-6 (Version None)
Quarter: 2011Q2

REPORT INFORMATION
  Report Type: 
  Country: None (occurrence: None)
  Receive Date: 20110506
  Receipt Date: 20110321
  Transmission Date: 20111010
  Serious: Yes (Other)
  Sender: FDA-Public Use
  Company Number: MN-BAYER-201039290NA

PATIENT
  Age: 15 Year
  Sex: Female

DRUGS (8)
  1. RETIN-A [Concomitant]
  2. DIFFERIN [Concomitant]
  3. ZANTAC [Concomitant]
     Indication: PRODUCT USED FOR UNKNOWN INDICATION
     Dosage: UNK UNK, BID
     Dates: start: 20060410
  4. UNKNOWN TOPIC FOR FACE [Concomitant]
  5. YASMIN [Suspect]
     Indication: PRODUCT USED FOR UNKNOWN INDICATION
     Dosage: UNK
     Dates: start: 20060201, end: 20060418
  6. CLEOCIN [Concomitant]
  7. SYNTHROID [Concomitant]
  8. UNKNOWN TOPIC FOR FACE [Concomitant]

REACTIONS (2)
  - CHOLECYSTITIS [None]
  - CHOLECYSTECTOMY [None]
